FAERS Safety Report 5595613-8 (Version None)
Quarter: 2008Q1

REPORT INFORMATION
  Report Type: 
  Country: None (occurrence: None)
  Receive Date: 20080116
  Receipt Date: 20080116
  Transmission Date: 20080703
  Serious: Yes (Hospitalization, Other)
  Sender: FDA-Public Use
  Company Number: None

PATIENT
  Age: 49 Year
  Sex: Female
  Weight: 38.6011 kg

DRUGS (2)
  1. LETROZOLE [Suspect]
     Indication: BREAST CANCER
     Dosage: 2.5MG DAILY  PO
     Route: 048
     Dates: start: 20071022, end: 20071122
  2. ZOLADEX [Suspect]
     Indication: BREAST CANCER
     Dosage: 3.6MG  MONTHLY  SQ
     Route: 058
     Dates: start: 20071011, end: 20071119

REACTIONS (4)
  - ANXIETY [None]
  - BIPOLAR DISORDER [None]
  - HYPOMANIA [None]
  - IRRITABILITY [None]
